FAERS Safety Report 12213115 (Version 1)
Quarter: 2016Q1

REPORT INFORMATION
  Report Type: Spontaneous
  Country: ES (occurrence: ES)
  Receive Date: 20160328
  Receipt Date: 20160328
  Transmission Date: 20160526
  Serious: Yes (Hospitalization)
  Sender: FDA-Public Use
  Company Number: ES-ALKEM-001544

PATIENT
  Age: 75 Year
  Sex: Female

DRUGS (9)
  1. AMLODIPINE [Suspect]
     Active Substance: AMLODIPINE BESYLATE
     Indication: PRODUCT USED FOR UNKNOWN INDICATION
  2. TEICOPLANIN [Suspect]
     Active Substance: TEICOPLANIN
     Indication: PRODUCT USED FOR UNKNOWN INDICATION
  3. TRAMADOL. [Concomitant]
     Active Substance: TRAMADOL
  4. PARACETAMOL [Concomitant]
     Active Substance: ACETAMINOPHEN
  5. OMEPRAZOLE. [Concomitant]
     Active Substance: OMEPRAZOLE
  6. MEROPENEM. [Concomitant]
     Active Substance: MEROPENEM
  7. LOSARTAN. [Concomitant]
     Active Substance: LOSARTAN
  8. NOLOTIL [Concomitant]
     Active Substance: METAMIZOLE
  9. BEMIPARIN SODIUM [Concomitant]
     Active Substance: BEMIPARIN SODIUM

REACTIONS (3)
  - Toxic epidermal necrolysis [Recovered/Resolved]
  - Acute generalised exanthematous pustulosis [Recovered/Resolved]
  - Stevens-Johnson syndrome [Recovered/Resolved]
